FAERS Safety Report 16750915 (Version 1)
Quarter: 2019Q3

REPORT INFORMATION
  Report Type: Spontaneous
  Country: NL (occurrence: NL)
  Receive Date: 20190828
  Receipt Date: 20190828
  Transmission Date: 20191005
  Serious: Yes (Other)
  Sender: FDA-Public Use
  Company Number: NL-MYLANLABS-2019M1080573

PATIENT
  Age: 64 Year
  Sex: Female

DRUGS (3)
  1. DIFFERIN [Concomitant]
     Active Substance: ADAPALENE
     Dosage: 1 MAAL DAAGS SMEREN
     Dates: start: 20190104
  2. VERAPAMIL [Suspect]
     Active Substance: VERAPAMIL HYDROCHLORIDE
     Indication: HYPERTENSION
     Dosage: 1 MAAL DAAGS 1 STUK
     Route: 048
     Dates: start: 20190129, end: 20190204
  3. DESLORATADINE. [Concomitant]
     Active Substance: DESLORATADINE
     Dosage: 1 PER DAG 1 TABLET
     Dates: start: 20180704

REACTIONS (1)
  - Hypersensitivity vasculitis [Recovered/Resolved with Sequelae]

NARRATIVE: CASE EVENT DATE: 20190203
